FAERS Safety Report 5538117-0 (Version None)
Quarter: 2007Q4

REPORT INFORMATION
  Report Type: 
  Country: None (occurrence: None)
  Receive Date: 20071207
  Receipt Date: 20071129
  Transmission Date: 20080405
  Serious: Yes (Hospitalization)
  Sender: FDA-Public Use
  Company Number: US-GENENTECH-252170

PATIENT

DRUGS (1)
  1. RITUXIMAB [Suspect]
     Indication: MULTIPLE SCLEROSIS

REACTIONS (2)
  - HAEMATOMA [None]
  - PERITONEAL INFECTION [None]
